FAERS Safety Report 5824524-5 (Version None)
Quarter: 2008Q3

REPORT INFORMATION
  Report Type: 
  Country: None (occurrence: None)
  Receive Date: 20080728
  Receipt Date: 20080721
  Transmission Date: 20090109
  Serious: Yes (Death)
  Sender: FDA-Public Use
  Company Number: US-TEVA-174616USA

PATIENT
  Age: 66 Year
  Sex: Male

DRUGS (4)
  1. GABAPENTIN [Suspect]
     Indication: PAIN
     Route: 048
     Dates: start: 20041115
  2. GABAPENTIN [Suspect]
     Indication: PARKINSON'S DISEASE
  3. GABAPENTIN [Suspect]
     Indication: PAIN
     Route: 048
     Dates: start: 20030913
  4. GABAPENTIN [Suspect]
     Indication: PARKINSON'S DISEASE

REACTIONS (5)
  - COMPLETED SUICIDE [None]
  - DRUG INEFFECTIVE [None]
  - DRUG INEFFECTIVE FOR UNAPPROVED INDICATION [None]
  - PAIN [None]
  - PARKINSON'S DISEASE [None]
